FAERS Safety Report 6235973-8 (Version None)
Quarter: 2009Q2

REPORT INFORMATION
  Report Type: 
  Country: None (occurrence: None)
  Receive Date: 20090619
  Receipt Date: 20090616
  Transmission Date: 20091009
  Serious: Yes (Death)
  Sender: FDA-Public Use
  Company Number: PHEH2009US05953

PATIENT
  Age: 76 Year
  Sex: Male

DRUGS (1)
  1. EXJADE [Suspect]
     Indication: MYELODYSPLASTIC SYNDROME
     Dosage: 1000 MG, QD

REACTIONS (2)
  - DISEASE PROGRESSION [None]
  - OEDEMA DUE TO CARDIAC DISEASE [None]
